FAERS Safety Report 8571063-7 (Version None)
Quarter: 2012Q3

REPORT INFORMATION
  Report Type: 
  Country: None (occurrence: None)
  Receive Date: 20120730
  Receipt Date: 20120730
  Transmission Date: 20120928
  Serious: Yes (Life-Threatening)
  Sender: FDA-Public Use
  Company Number: None

PATIENT
  Age: 43 Year
  Sex: Female

DRUGS (12)
  1. BACLOFEN [Concomitant]
  2. FIORICET [Concomitant]
  3. ROBAXIN [Concomitant]
  4. CEREFOLIN [Concomitant]
  5. FAMICYCLOVIR [Concomitant]
  6. VITAMIN D [Concomitant]
  7. VALIUM [Concomitant]
  8. XANAX [Concomitant]
  9. COPAXONE [Suspect]
     Indication: MULTIPLE SCLEROSIS
     Dosage: 20MG DAILY SUBQ
     Route: 058
     Dates: start: 20091218
  10. ASCORBIC ACID [Concomitant]
  11. IBUPROFEN [Concomitant]
  12. PRILOSEC [Concomitant]

REACTIONS (1)
  - CHEST PAIN [None]
